FAERS Safety Report 18410351 (Version 2)
Quarter: 2020Q4

REPORT INFORMATION
  Report Type: Spontaneous
  Country: SE (occurrence: SE)
  Receive Date: 20201021
  Receipt Date: 20201207
  Transmission Date: 20210114
  Serious: Yes (Death, Other)
  Sender: FDA-Public Use
  Company Number: SE-ABBVIE-20K-150-3618405-00

PATIENT
  Age: 68 Year
  Sex: Male

DRUGS (3)
  1. VENCLYXTO [Suspect]
     Active Substance: VENETOCLAX
     Indication: CHRONIC LYMPHOCYTIC LEUKAEMIA
     Route: 048
     Dates: start: 20180828
  2. IMBRUVICA [Suspect]
     Active Substance: IBRUTINIB
     Indication: CHRONIC LYMPHOCYTIC LEUKAEMIA
     Route: 048
     Dates: start: 201510
  3. RASBURICASE [Concomitant]
     Active Substance: RASBURICASE
     Indication: PRODUCT USED FOR UNKNOWN INDICATION

REACTIONS (12)
  - Renal failure [Fatal]
  - Oliguria [Unknown]
  - Pyrexia [Unknown]
  - Dyspnoea [Unknown]
  - Blood phosphorus increased [Unknown]
  - Infection [Unknown]
  - Death [Fatal]
  - Tumour lysis syndrome [Fatal]
  - Blood creatinine increased [Unknown]
  - Sepsis [Fatal]
  - General physical health deterioration [Fatal]
  - Dehydration [Unknown]

NARRATIVE: CASE EVENT DATE: 20180829
